FAERS Safety Report 8419864-X (Version None)
Quarter: 2012Q2

REPORT INFORMATION
  Report Type: 
  Country: None (occurrence: None)
  Receive Date: 20120607
  Receipt Date: 20120529
  Transmission Date: 20120825
  Serious: Yes (Hospitalization)
  Sender: FDA-Public Use
  Company Number: AT-ABBOTT-12P-009-0941363-00

PATIENT
  Age: 46 Year
  Sex: Male

DRUGS (7)
  1. DEPAKENE [Concomitant]
     Indication: PRODUCT USED FOR UNKNOWN INDICATION
     Dosage: DAILY/CUMULATIVE DOSE:  1000 003
     Dates: end: 20110901
  2. CLOZAPINE [Suspect]
     Dosage: DAILY DOSE(S) 400 003
     Dates: start: 20120404
  3. FLUOXETINE [Suspect]
     Indication: PRODUCT USED FOR UNKNOWN INDICATION
     Dosage: DAILY DOSE(S) 40  003
     Dates: start: 20110901, end: 20120404
  4. MAGNESIUM [Concomitant]
     Indication: PRODUCT USED FOR UNKNOWN INDICATION
     Dosage: DAILY/CUMULATIVE DOSE:  2 032 1/1 DAY
  5. ABILIFY [Interacting]
     Indication: PRODUCT USED FOR UNKNOWN INDICATION
     Dosage: DAILY DOSE(S) 15 003
     Dates: start: 20110901, end: 20120404
  6. CLOZAPINE [Suspect]
     Indication: PRODUCT USED FOR UNKNOWN INDICATION
     Dosage: DAILY DOSE(S) 350 003
     Dates: start: 20120201, end: 20120404
  7. BIPERIDEN HYDROCHLORIDE TAB [Interacting]
     Indication: PRODUCT USED FOR UNKNOWN INDICATION
     Dosage: 4 003 1/1 DAY

REACTIONS (5)
  - BLOOD CREATINE PHOSPHOKINASE INCREASED [None]
  - EPILEPSY [None]
  - ELECTROENCEPHALOGRAM ABNORMAL [None]
  - FALL [None]
  - DRUG INTERACTION [None]
